FAERS Safety Report 5293813-8 (Version None)
Quarter: 2007Q2

REPORT INFORMATION
  Report Type: 
  Country: None (occurrence: None)
  Receive Date: 20070411
  Receipt Date: 20070330
  Transmission Date: 20071010
  Serious: Yes (Death, Hospitalization, Other)
  Sender: FDA-Public Use
  Company Number: US-PFIZER INC-2006088632

PATIENT
  Sex: Female
  Weight: 64.9 kg

DRUGS (18)
  1. NEURONTIN [Suspect]
     Indication: PAIN
  2. LORTAB [Suspect]
  3. AMITRIPTYLINE HCL [Suspect]
  4. PCP [Suspect]
  5. TOPROL-XL [Concomitant]
  6. PROTONIX [Concomitant]
  7. RANITIDINE [Concomitant]
  8. CLONIDINE [Concomitant]
  9. CARISOPRODOL [Concomitant]
  10. LORAZEPAM [Concomitant]
  11. HYDROCODONE [Concomitant]
  12. OXYCODONE HCL [Concomitant]
  13. FLUOXETINE [Concomitant]
  14. LOVASTATIN [Concomitant]
  15. FOSAMAX [Concomitant]
  16. PREVACID [Concomitant]
  17. NITROQUICK [Concomitant]
  18. MIACALCIN [Concomitant]

REACTIONS (12)
  - ANXIETY [None]
  - CARDIAC ARREST [None]
  - COMPLETED SUICIDE [None]
  - GASTROINTESTINAL MUCOSAL NECROSIS [None]
  - HYPOTENSION [None]
  - HYPOXIC ENCEPHALOPATHY [None]
  - METABOLIC ACIDOSIS [None]
  - MULTIPLE DRUG OVERDOSE [None]
  - PNEUMONIA ASPIRATION [None]
  - RENAL FAILURE [None]
  - RESPIRATORY ARREST [None]
  - SUICIDAL IDEATION [None]
